FAERS Safety Report 17342543 (Version 1)
Quarter: 2020Q1

REPORT INFORMATION
  Report Type: Spontaneous
  Country: US (occurrence: US)
  Receive Date: 20200129
  Receipt Date: 20200129
  Transmission Date: 20200409
  Serious: No
  Sender: FDA-Public Use
  Company Number: US-ALLERGAN-1926446US

PATIENT
  Age: 66 Year
  Sex: Female

DRUGS (2)
  1. JUVEDERM VOLLURE XC [Concomitant]
     Indication: PRODUCT USED FOR UNKNOWN INDICATION
     Dosage: 35 SYRINGES, SINGLE
     Route: 065
     Dates: start: 20190108, end: 20190108
  2. BOTOX COSMETIC [Suspect]
     Active Substance: ONABOTULINUMTOXINA
     Indication: PRODUCT USED FOR UNKNOWN INDICATION
     Dosage: 60 UNITS, SINGLE
     Dates: start: 20190108, end: 20190108

REACTIONS (1)
  - Nodule [Unknown]

NARRATIVE: CASE EVENT DATE: 20190611
